FAERS Safety Report 14693355 (Version 3)
Quarter: 2019Q3

REPORT INFORMATION
  Report Type: Spontaneous
  Country: US (occurrence: US)
  Receive Date: 20180329
  Receipt Date: 20190910
  Transmission Date: 20191004
  Serious: Yes (Hospitalization, Other)
  Sender: FDA-Public Use
  Company Number: US-ASTRAZENECA-2018SE37481

PATIENT
  Age: 13931 Day
  Sex: Male
  Weight: 129.3 kg

DRUGS (40)
  1. PRILOSEC [Suspect]
     Active Substance: OMEPRAZOLE MAGNESIUM
     Indication: GASTROINTESTINAL DISORDER
     Dosage: GENERIC
     Route: 065
     Dates: start: 20131130, end: 20160216
  2. GABAPENTIN. [Concomitant]
     Active Substance: GABAPENTIN
     Indication: NEURALGIA
  3. CEPHALEXIN. [Concomitant]
     Active Substance: CEPHALEXIN
  4. FLUTICASONE. [Concomitant]
     Active Substance: FLUTICASONE
  5. BANOPHEN [Concomitant]
     Active Substance: DIPHENHYDRAMINE HYDROCHLORIDE
  6. CIPROFLOXACIN. [Concomitant]
     Active Substance: CIPROFLOXACIN
  7. NICOTINE. [Concomitant]
     Active Substance: NICOTINE
  8. CITALOPRAM [Concomitant]
     Active Substance: CITALOPRAM HYDROBROMIDE
  9. PATANOL [Concomitant]
     Active Substance: OLOPATADINE HYDROCHLORIDE
  10. PRILOSEC OTC [Suspect]
     Active Substance: OMEPRAZOLE MAGNESIUM
     Indication: GASTROINTESTINAL DISORDER
     Route: 048
     Dates: start: 20150109, end: 20170531
  11. D-AMPHETAMINE [Concomitant]
     Active Substance: DEXTROAMPHETAMINE
  12. BUPROPION. [Concomitant]
     Active Substance: BUPROPION
  13. DOXYCYCLINE HYCLATE. [Concomitant]
     Active Substance: DOXYCYCLINE HYCLATE
  14. AZITHROMYCIN ANHYDROUS. [Concomitant]
     Active Substance: AZITHROMYCIN ANHYDROUS
     Indication: INFECTION
  15. TRAMADOL. [Concomitant]
     Active Substance: TRAMADOL
  16. ARIPIPRAZOLE. [Concomitant]
     Active Substance: ARIPIPRAZOLE
  17. PRILOSEC [Suspect]
     Active Substance: OMEPRAZOLE MAGNESIUM
     Indication: GASTROOESOPHAGEAL REFLUX DISEASE
     Route: 048
     Dates: start: 201501, end: 201705
  18. PREDNISOLONE. [Concomitant]
     Active Substance: PREDNISOLONE
  19. IBUPROFEN. [Concomitant]
     Active Substance: IBUPROFEN
     Indication: PAIN
  20. NAPROXEN. [Concomitant]
     Active Substance: NAPROXEN
  21. ONDANSETRON [Concomitant]
     Active Substance: ONDANSETRON
  22. CETIRIZINE [Concomitant]
     Active Substance: CETIRIZINE HYDROCHLORIDE
  23. BENZONATATE. [Concomitant]
     Active Substance: BENZONATATE
  24. FAMOTIDINE. [Concomitant]
     Active Substance: FAMOTIDINE
  25. AZITHROMYCIN ANHYDROUS. [Concomitant]
     Active Substance: AZITHROMYCIN ANHYDROUS
  26. VYVANSE [Concomitant]
     Active Substance: LISDEXAMFETAMINE DIMESYLATE
  27. LORAZEPAM. [Concomitant]
     Active Substance: LORAZEPAM
  28. PRILOSEC [Suspect]
     Active Substance: OMEPRAZOLE MAGNESIUM
     Indication: GASTROINTESTINAL DISORDER
     Route: 048
     Dates: start: 201501, end: 201705
  29. PRILOSEC OTC [Suspect]
     Active Substance: OMEPRAZOLE MAGNESIUM
     Indication: GASTROOESOPHAGEAL REFLUX DISEASE
     Route: 048
     Dates: start: 20150109, end: 20170531
  30. AMLODIPINE BESYLATE. [Concomitant]
     Active Substance: AMLODIPINE BESYLATE
  31. MECLIZINE [Concomitant]
     Active Substance: MECLIZINE HYDROCHLORIDE
  32. PRILOSEC [Suspect]
     Active Substance: OMEPRAZOLE MAGNESIUM
     Indication: GASTROOESOPHAGEAL REFLUX DISEASE
     Dosage: GENERIC
     Route: 065
     Dates: start: 20131130, end: 20160216
  33. CIPROFLOXACIN. [Concomitant]
     Active Substance: CIPROFLOXACIN
     Indication: INFECTION
  34. PROAIR HFA [Concomitant]
     Active Substance: ALBUTEROL SULFATE
  35. TOBRAMYCIN. [Concomitant]
     Active Substance: TOBRAMYCIN
  36. PREDNISONE. [Concomitant]
     Active Substance: PREDNISONE
  37. ACYCLOVIR. [Concomitant]
     Active Substance: ACYCLOVIR
  38. ALREX [Concomitant]
     Active Substance: LOTEPREDNOL ETABONATE
  39. STRATTERA [Concomitant]
     Active Substance: ATOMOXETINE HYDROCHLORIDE
  40. TUMS [Concomitant]
     Active Substance: CALCIUM CARBONATE

REACTIONS (3)
  - Renal failure [Not Recovered/Not Resolved]
  - Acute kidney injury [Not Recovered/Not Resolved]
  - Chronic kidney disease [Unknown]

NARRATIVE: CASE EVENT DATE: 20160505
